FAERS Safety Report 11372988 (Version 1)
Quarter: 2015Q3

REPORT INFORMATION
  Report Type: Spontaneous
  Country: US (occurrence: US)
  Receive Date: 20150811
  Receipt Date: 20150811
  Transmission Date: 20151125
  Serious: No
  Sender: FDA-Public Use
  Company Number: US-ELI_LILLY_AND_COMPANY-US201203003134

PATIENT
  Age: 35 Year
  Sex: Female
  Weight: 112.93 kg

DRUGS (2)
  1. ADCIRCA [Suspect]
     Active Substance: TADALAFIL
  2. TYVASO [Concomitant]
     Active Substance: TREPROSTINIL
     Indication: PULMONARY HYPERTENSION
     Dosage: 10 DF, QID
     Route: 055

REACTIONS (9)
  - Chest discomfort [Unknown]
  - Dizziness [Unknown]
  - Oedema peripheral [Unknown]
  - Decreased appetite [Unknown]
  - Insomnia [Unknown]
  - Dyspepsia [Unknown]
  - Dry mouth [Unknown]
  - Pain in extremity [Unknown]
  - Nausea [Unknown]
